FAERS Safety Report 6967174-X (Version None)
Quarter: 2010Q3

REPORT INFORMATION
  Report Type: 
  Country: None (occurrence: None)
  Receive Date: 20100907
  Receipt Date: 20100823
  Transmission Date: 20110219
  Serious: Yes (Hospitalization)
  Sender: FDA-Public Use
  Company Number: US-BAYER-201026191NA

PATIENT
  Sex: Female
  Weight: 118 kg

DRUGS (7)
  1. YASMIN [Suspect]
     Indication: CONTRACEPTION
     Dosage: ABOUT 10 SAMPLES RECEIVED IN 2004-2005 FROM HCP. PHARMACY RECORDS: DISPENSED ON 06-MAY-2006
     Route: 048
     Dates: start: 20040101, end: 20090101
  2. YAZ [Suspect]
     Indication: PRODUCT USED FOR UNKNOWN INDICATION
     Dosage: USED IN 2005
     Route: 048
  3. FLAGYL [Concomitant]
     Dosage: PHARMACY RECORDS: SOMETIME BETWEEN FEB-2006 AND SEP-2009.
     Route: 065
  4. PHENTERMINE [Concomitant]
     Dosage: PHARMACY RECORDS: SOMETIME BETWEEN FEB-2006 AND SEP-2009.
     Route: 065
  5. FLUCONAZOLE [Concomitant]
     Dosage: PHARMACY RECORDS: SOMETIME BETWEEN FEB-2006 AND SEP-2009.
     Route: 065
  6. CIPROFLOXACIN [Concomitant]
     Dosage: PHARMACY RECORDS: SOMETIME BETWEEN FEB-2006 AND SEP-2009.
     Route: 065
  7. ZAITHROMYCIN [Concomitant]
     Dosage: PHARMACY RECORDS: SOMETIME BETWEEN FEB-2006 AND SEP-2009.
     Route: 065

REACTIONS (6)
  - ABDOMINAL PAIN UPPER [None]
  - BILIARY DYSKINESIA [None]
  - CHOLECYSTITIS CHRONIC [None]
  - DYSPNOEA EXERTIONAL [None]
  - MICROLITHIASIS [None]
  - NAUSEA [None]
